FAERS Safety Report 8067324-0 (Version None)
Quarter: 2012Q1

REPORT INFORMATION
  Report Type: 
  Country: None (occurrence: None)
  Receive Date: 20120124
  Receipt Date: 20111215
  Transmission Date: 20120608
  Serious: Yes (Hospitalization)
  Sender: FDA-Public Use
  Company Number: JP-GLAXOSMITHKLINE-B0769997A

PATIENT
  Sex: Female
  Weight: 26 kg

DRUGS (5)
  1. LAMICTAL [Suspect]
     Indication: EPILEPSY
     Dosage: 25MG ALTERNATE DAYS
     Route: 048
     Dates: start: 20111115, end: 20111128
  2. TOPIRAMATE [Concomitant]
     Indication: EPILEPSY
     Dosage: 3IUAX PER DAY
     Route: 048
     Dates: start: 20080321
  3. DIAZEPAM [Concomitant]
     Dosage: 700MG PER DAY
     Route: 048
     Dates: start: 20090227
  4. DIAZEPAM [Concomitant]
     Indication: EPILEPSY
     Dosage: 3MG PER DAY
     Route: 048
     Dates: start: 20081121
  5. VALPROATE SODIUM [Concomitant]
     Route: 048

REACTIONS (12)
  - PNEUMONIA ASPIRATION [None]
  - LIP EROSION [None]
  - STEVENS-JOHNSON SYNDROME [None]
  - OEDEMA PERIPHERAL [None]
  - ERYTHEMA OF EYELID [None]
  - INTERLEUKIN-2 RECEPTOR INCREASED [None]
  - ERYTHEMA [None]
  - PYREXIA [None]
  - OCULAR HYPERAEMIA [None]
  - ORAL MUCOSA EROSION [None]
  - RASH [None]
  - C-REACTIVE PROTEIN INCREASED [None]
